FAERS Safety Report 7729251-5 (Version None)
Quarter: 2011Q3

REPORT INFORMATION
  Report Type: 
  Country: None (occurrence: None)
  Receive Date: 20110906
  Receipt Date: 20110829
  Transmission Date: 20111222
  Serious: Yes (Hospitalization, Other)
  Sender: FDA-Public Use
  Company Number: JP-JNJFOC-20110509722

PATIENT
  Sex: Female
  Weight: 42 kg

DRUGS (13)
  1. REMICADE [Suspect]
     Indication: PSORIATIC ARTHROPATHY
     Route: 042
     Dates: start: 20100821
  2. FOLIC ACID [Concomitant]
     Indication: FOLATE DEFICIENCY
     Route: 048
     Dates: start: 20100405
  3. OMEPRAZOLE [Concomitant]
     Indication: GASTROINTESTINAL DISORDER THERAPY
     Route: 048
     Dates: start: 20090223
  4. REMICADE [Suspect]
     Route: 042
     Dates: start: 20100821
  5. FLUMETHOLON [Concomitant]
     Indication: ULCERATIVE KERATITIS
     Route: 031
  6. REMICADE [Suspect]
     Indication: BEHCET'S SYNDROME
     Dosage: TOTAL 2 INFUSIONS
     Route: 042
     Dates: start: 20100903
  7. RHEUMATREX [Suspect]
     Indication: PSORIATIC ARTHROPATHY
     Route: 048
     Dates: start: 20100405
  8. REMICADE [Suspect]
     Dosage: TOTAL 2 INFUSIONS
     Route: 042
     Dates: start: 20100903
  9. NEORAL [Suspect]
     Indication: PSORIATIC ARTHROPATHY
     Route: 048
     Dates: start: 20100531
  10. RHEUMATREX [Suspect]
     Route: 048
     Dates: start: 20091101
  11. PATANOL [Concomitant]
     Indication: CONJUNCTIVITIS ALLERGIC
     Route: 031
  12. NEORAL [Suspect]
     Route: 048
     Dates: start: 20091101
  13. BETAMETHASONE [Suspect]
     Indication: BEHCET'S SYNDROME
     Route: 048
     Dates: start: 20090223

REACTIONS (1)
  - PNEUMONIA CRYPTOCOCCAL [None]
